FAERS Safety Report 8558710-0 (Version None)
Quarter: 2012Q3

REPORT INFORMATION
  Report Type: 
  Country: None (occurrence: None)
  Receive Date: 20120801
  Receipt Date: 20120724
  Transmission Date: 20120928
  Serious: Yes (Hospitalization)
  Sender: FDA-Public Use
  Company Number: JP-GILEAD-2012-0058300

PATIENT
  Age: 29 Year
  Sex: Male

DRUGS (3)
  1. DOXIL [Concomitant]
     Dosage: UNK
  2. ISENTRESS [Suspect]
     Indication: HIV INFECTION
     Dosage: UNK
     Route: 048
  3. TRUVADA [Suspect]
     Indication: HIV INFECTION
     Dosage: UNK
     Route: 048

REACTIONS (2)
  - HYDRONEPHROSIS [None]
  - IMMUNE RECONSTITUTION SYNDROME [None]
